FAERS Safety Report 8071003-3 (Version None)
Quarter: 2012Q1

REPORT INFORMATION
  Report Type: 
  Country: None (occurrence: None)
  Receive Date: 20120125
  Receipt Date: 20120123
  Transmission Date: 20120608
  Serious: Yes (Hospitalization, Other)
  Sender: FDA-Public Use
  Company Number: US-PURDUE-CAN-2011-0002069

PATIENT
  Age: 78 Year
  Sex: Male
  Weight: 75.692 kg

DRUGS (29)
  1. DILAUDID [Suspect]
     Indication: ORAL PAIN
     Dosage: 0.5 MG, Q4H PRN
     Route: 058
     Dates: start: 20101007, end: 20101007
  2. QUETIAPINE [Concomitant]
     Indication: MOOD ALTERED
     Dosage: UNK
     Dates: start: 20101011
  3. QUETIAPINE [Concomitant]
     Indication: DEPRESSION
  4. COSOPT [Concomitant]
     Indication: GLAUCOMA
     Dosage: UNK
     Dates: start: 20040101
  5. BISACODYL [Concomitant]
     Indication: CONSTIPATION
     Dosage: UNK
     Dates: start: 20101011, end: 20101016
  6. DILAUDID [Suspect]
     Indication: ORAL PAIN
     Dosage: 2 MG, Q4H PRN
     Route: 048
     Dates: start: 20101016, end: 20101017
  7. DALTEPARIN SODIUM [Concomitant]
     Indication: PULMONARY EMBOLISM
     Dosage: UNK
     Dates: start: 20101011
  8. PHOSPHATE-SANDOZ [Concomitant]
     Indication: HYPOPHOSPHATAEMIA
     Dosage: 500 MG, UNK
     Route: 048
     Dates: start: 20101007, end: 20101017
  9. BENZYDAMINE [Concomitant]
     Indication: STOMATITIS
     Dosage: UNK
     Dates: start: 20101007
  10. DILAUDID [Suspect]
     Indication: GROIN PAIN
     Dosage: 1 MG, Q4H PRN
     Route: 048
     Dates: start: 20101005, end: 20101005
  11. DILAUDID [Suspect]
     Dosage: 1 MG, Q4H PRN
     Route: 058
     Dates: start: 20101007, end: 20101007
  12. PREDNISONE [Suspect]
     Indication: PROSTATE CANCER
     Dosage: 5 MG, DAILY
     Route: 048
     Dates: start: 20100705, end: 20100927
  13. LACTULOSE [Concomitant]
     Indication: CONSTIPATION
     Dosage: UNK
     Dates: start: 20101007
  14. METHYLCELLULOSE [Concomitant]
     Indication: DRY EYE
     Dosage: UNK
     Dates: start: 20101006, end: 20101016
  15. DOCUSATE SODIUM [Concomitant]
     Indication: CONSTIPATION
     Dosage: UNK
     Dates: start: 20100719
  16. MILK OF MAGNESIA TAB [Concomitant]
     Indication: CONSTIPATION
     Dosage: 15 ML, BID PRN
  17. POTASSIUM CITRATE [Concomitant]
     Indication: HYPOKALAEMIA
     Dosage: UNK
     Dates: start: 20101011
  18. BIMATOPROST [Concomitant]
     Indication: GLAUCOMA
     Dosage: UNK
     Dates: start: 20040101
  19. NYSTATIN [Concomitant]
     Indication: STOMATITIS
     Dosage: UNK
     Dates: start: 20101006, end: 20101016
  20. DILAUDID [Suspect]
     Indication: BONE PAIN
     Dosage: 1 MG, Q4H PRN
     Route: 048
     Dates: start: 20100720, end: 20101006
  21. PLACEBO [Suspect]
     Indication: PROSTATE CANCER
     Dosage: 37.5 MG, DAILY
     Route: 048
     Dates: start: 20100705, end: 20100927
  22. DOMPERIDONE [Concomitant]
     Indication: GASTROOESOPHAGEAL REFLUX DISEASE
     Dosage: UNK
     Dates: start: 20101007, end: 20101016
  23. MAALOX                             /00082501/ [Concomitant]
     Indication: GASTROOESOPHAGEAL REFLUX DISEASE
     Dosage: UNK
     Dates: start: 20101011, end: 20101016
  24. SUNITINIB MALATE [Suspect]
     Indication: PROSTATE CANCER
     Dosage: 37.5 MG, DAILY
     Route: 048
     Dates: start: 20100705, end: 20100927
  25. SLOW-K [Concomitant]
     Indication: HYPOKALAEMIA
     Dosage: UNK
     Dates: start: 20101007
  26. DIMENHYDRINATE [Concomitant]
     Indication: VOMITING
     Dosage: UNK
     Dates: start: 20101008, end: 20101008
  27. PANTOPRAZOLE [Concomitant]
     Indication: GASTROOESOPHAGEAL REFLUX DISEASE
     Dosage: UNK
     Dates: start: 20100818
  28. LIDOCAINE [Concomitant]
     Indication: STOMATITIS
     Dosage: UNK
     Dates: start: 20101008, end: 20101016
  29. MILK OF MAGNESIA TAB [Concomitant]
     Dosage: 30 ML, BID PRN

REACTIONS (3)
  - VOMITING [None]
  - CONSTIPATION [None]
  - INTESTINAL OBSTRUCTION [None]
